FAERS Safety Report 4285369-3 (Version None)
Quarter: 2004Q1

REPORT INFORMATION
  Report Type: 
  Country: None (occurrence: None)
  Receive Date: 20040202
  Receipt Date: 20040123
  Transmission Date: 20041129
  Serious: Yes (Other)
  Sender: FDA-Public Use
  Company Number: 2004005083

PATIENT
  Age: 4 Year
  Sex: Male

DRUGS (1)
  1. DIFLUCAN [Suspect]
     Indication: FUNGAEMIA
     Dosage: 50 MG, INTRAVENOUS
     Route: 042
     Dates: start: 20031101

REACTIONS (1)
  - BLOOD GLUCOSE DECREASED [None]
